FAERS Safety Report 19132681 (Version 1)
Quarter: 2021Q2

REPORT INFORMATION
  Report Type: Spontaneous
  Country: US (occurrence: US)
  Receive Date: 20210413
  Receipt Date: 20210413
  Transmission Date: 20210717
  Serious: Yes (Other)
  Sender: FDA-Public Use
  Company Number: None

PATIENT
  Age: 85 Year
  Sex: Male
  Weight: 72 kg

DRUGS (2)
  1. LISINOPRIL. [Concomitant]
     Active Substance: LISINOPRIL
     Dates: start: 20210330, end: 20210413
  2. LISINOPRIL. [Suspect]
     Active Substance: LISINOPRIL
     Indication: HYPERTENSION
     Route: 048
     Dates: start: 20210330, end: 20210413

REACTIONS (5)
  - Periorbital oedema [None]
  - Lip swelling [None]
  - Hypersensitivity [None]
  - Skin exfoliation [None]
  - Face oedema [None]

NARRATIVE: CASE EVENT DATE: 20210413
